FAERS Safety Report 4485247-0 (Version None)
Quarter: 2004Q4

REPORT INFORMATION
  Report Type: 
  Country: None (occurrence: None)
  Receive Date: 20041021
  Receipt Date: 20041015
  Transmission Date: 20050328
  Serious: Yes (Death, Life-Threatening, Other)
  Sender: FDA-Public Use
  Company Number: KII-2004-0013616

PATIENT
  Age: 50 Year
  Sex: Male

DRUGS (2)
  1. MORPHINE SULFATE [Suspect]
  2. BENZODIAZEPINE DERIVATIVES [Suspect]

REACTIONS (7)
  - APNOEA [None]
  - BLOOD PRESSURE DECREASED [None]
  - COMA [None]
  - MULTIPLE DRUG OVERDOSE [None]
  - MYDRIASIS [None]
  - NO THERAPEUTIC RESPONSE [None]
  - PUPIL FIXED [None]
